FAERS Safety Report 14553604 (Version 1)
Quarter: 2018Q1

REPORT INFORMATION
  Report Type: Spontaneous
  Country: US (occurrence: US)
  Receive Date: 20180220
  Receipt Date: 20180220
  Transmission Date: 20180509
  Serious: No
  Sender: FDA-Public Use
  Company Number: US-FERRINGPH-2017FE05483

PATIENT
  Age: 32 Year
  Sex: Female
  Weight: 66.76 kg

DRUGS (6)
  1. GANIRELIX [Concomitant]
     Active Substance: GANIRELIX
     Indication: INFERTILITY
     Dosage: UNK
     Route: 065
     Dates: start: 2017
  2. OVIDREL                            /01277601/ [Concomitant]
     Indication: INFERTILITY
     Dosage: UNK
     Route: 065
     Dates: start: 20171026
  3. NOVAREL [Suspect]
     Active Substance: CHORIOGONADOTROPIN ALFA
     Indication: INFERTILITY
     Dosage: 7500 IU, ONCE/SINGLE
     Route: 058
     Dates: start: 20171025, end: 20171025
  4. LUPRON [Concomitant]
     Active Substance: LEUPROLIDE ACETATE
     Indication: INFERTILITY
     Dosage: 40 IU, UNK
     Route: 065
     Dates: start: 20171025
  5. FOLLISTIM [Concomitant]
     Active Substance: FOLLITROPIN
     Indication: INFERTILITY
     Dosage: UNK
     Route: 065
     Dates: start: 2017
  6. MENOPUR [Concomitant]
     Active Substance: FOLLITROPIN\LUTEINIZING HORMONE
     Indication: INFERTILITY
     Dosage: UNK
     Route: 065
     Dates: start: 2017

REACTIONS (2)
  - Drug ineffective [Unknown]
  - Product quality issue [Unknown]

NARRATIVE: CASE EVENT DATE: 2017
